FAERS Safety Report 6609262-3 (Version None)
Quarter: 2010Q1

REPORT INFORMATION
  Report Type: 
  Country: None (occurrence: None)
  Receive Date: 20100224
  Receipt Date: 20100119
  Transmission Date: 20100710
  Serious: Yes (Hospitalization)
  Sender: FDA-Public Use
  Company Number: CIO10001340

PATIENT
  Age: 69 Year
  Sex: Female

DRUGS (3)
  1. CREST WHITENING PLUS SCOPE TOOTHPASTE, MINTY FRESH FLAVOR(SODIUM ACID [Suspect]
     Dosage: 1 APPLIC, INTRAORAL
     Route: 048
  2. FAMOTIDINE [Suspect]
     Indication: GASTROOESOPHAGEAL REFLUX DISEASE
     Dosage: ORAL
     Route: 048
  3. GUM THAT CONTAINS PHENYLALANINE [Suspect]
     Dosage: INTRAORAL
     Route: 048

REACTIONS (3)
  - DIZZINESS [None]
  - LOSS OF CONSCIOUSNESS [None]
  - REACTION TO FOOD ADDITIVE [None]
